FAERS Safety Report 21242053 (Version 3)
Quarter: 2022Q4

REPORT INFORMATION
  Report Type: Spontaneous
  Country: US (occurrence: US)
  Receive Date: 20220823
  Receipt Date: 20221220
  Transmission Date: 20230112
  Serious: No
  Sender: FDA-Public Use
  Company Number: US-009507513-2208USA003198

PATIENT
  Sex: Male

DRUGS (9)
  1. BELSOMRA [Suspect]
     Active Substance: SUVOREXANT
     Indication: Sleep apnoea syndrome
     Dosage: 5MG/ONCE A NIGHT
     Route: 048
     Dates: start: 20220730, end: 2022
  2. BELSOMRA [Suspect]
     Active Substance: SUVOREXANT
     Dosage: 10MG/ONCE A NIGHT
     Route: 048
     Dates: start: 2022
  3. BELSOMRA [Suspect]
     Active Substance: SUVOREXANT
     Dosage: 5MG/ONCE A NIGHT
     Route: 048
     Dates: start: 2022
  4. BELSOMRA [Suspect]
     Active Substance: SUVOREXANT
     Dosage: UNK
     Route: 048
     Dates: start: 202210, end: 2022
  5. BELSOMRA [Suspect]
     Active Substance: SUVOREXANT
     Dosage: TABLET CUT IN HALF
     Route: 048
     Dates: start: 2022, end: 2022
  6. BELSOMRA [Suspect]
     Active Substance: SUVOREXANT
     Dosage: 1/2 OF A 1/2 OF A 10 MG TABLET
     Route: 048
     Dates: start: 2022, end: 2022
  7. TRAZODONE [Suspect]
     Active Substance: TRAZODONE HYDROCHLORIDE
     Dosage: UNK
  8. SUNOSI [Suspect]
     Active Substance: SOLRIAMFETOL
     Dosage: UNK
  9. TRESIBA [Concomitant]
     Active Substance: INSULIN DEGLUDEC
     Dosage: 36 MG EVERY NIGTH

REACTIONS (10)
  - Blood glucose decreased [Not Recovered/Not Resolved]
  - Balance disorder [Recovering/Resolving]
  - Drug ineffective [Unknown]
  - Drug effect faster than expected [Unknown]
  - Drug effective for unapproved indication [Unknown]
  - Therapeutic response unexpected [Unknown]
  - Product label confusion [Unknown]
  - Product use complaint [Unknown]
  - Product packaging difficult to open [Unknown]
  - Wrong technique in product usage process [Unknown]

NARRATIVE: CASE EVENT DATE: 20220101
